FAERS Safety Report 17788247 (Version 6)
Quarter: 2020Q2

REPORT INFORMATION
  Report Type: Spontaneous
  Country: US (occurrence: US)
  Receive Date: 20200515
  Receipt Date: 20200604
  Transmission Date: 20200714
  Serious: Yes (Hospitalization)
  Sender: FDA-Public Use
  Company Number: US-BIOGEN-2020BI00873049

PATIENT
  Sex: Female

DRUGS (1)
  1. TYSABRI [Suspect]
     Active Substance: NATALIZUMAB
     Indication: MULTIPLE SCLEROSIS
     Dosage: INFUSED OVER 1 HOUR
     Route: 042
     Dates: start: 20170317

REACTIONS (12)
  - Fall [Recovered/Resolved]
  - Mobility decreased [Not Recovered/Not Resolved]
  - Panic reaction [Unknown]
  - Feeling abnormal [Unknown]
  - Malaise [Unknown]
  - Anxiety [Not Recovered/Not Resolved]
  - Nervousness [Unknown]
  - Product dose omission [Unknown]
  - Diabetes mellitus [Not Recovered/Not Resolved]
  - Multiple sclerosis [Not Recovered/Not Resolved]
  - Wound [Not Recovered/Not Resolved]
  - Skin lesion [Not Recovered/Not Resolved]
